FAERS Safety Report 25741910 (Version 1)
Quarter: 2025Q3

REPORT INFORMATION
  Report Type: Spontaneous
  Country: US (occurrence: US)
  Receive Date: 20250829
  Receipt Date: 20250829
  Transmission Date: 20251020
  Serious: Yes (Hospitalization)
  Sender: ELI LILLY AND COMPANY
  Company Number: US-ELI_LILLY_AND_COMPANY-US202508018161

PATIENT
  Age: 85 Year
  Sex: Female
  Weight: 63.5 kg

DRUGS (11)
  1. DONANEMAB [Suspect]
     Active Substance: DONANEMAB
     Indication: Dementia Alzheimer^s type
     Dosage: 700 MG, MONTHLY (1/M) (1ST INFUSION)
     Route: 042
     Dates: start: 20250721, end: 20250817
  2. LORAZEPAM [Concomitant]
     Active Substance: LORAZEPAM
     Indication: Claustrophobia
     Route: 065
     Dates: start: 20250811, end: 20250812
  3. MEMANTINE [Concomitant]
     Active Substance: MEMANTINE
     Indication: Cerebral amyloid angiopathy
     Route: 065
     Dates: start: 20250630
  4. LEVOTHYROXINE [Concomitant]
     Active Substance: LEVOTHYROXINE
     Indication: Hypothyroidism
     Route: 065
     Dates: start: 20250617
  5. PRAVASTATIN [Concomitant]
     Active Substance: PRAVASTATIN
     Indication: Hyperlipidaemia
     Route: 065
     Dates: start: 20250617
  6. TRAZODONE [Concomitant]
     Active Substance: TRAZODONE HYDROCHLORIDE
     Indication: Insomnia
     Route: 065
     Dates: start: 20250617
  7. VALSARTAN [Concomitant]
     Active Substance: VALSARTAN
     Indication: Hypertension
     Route: 065
     Dates: start: 20250617
  8. ESTRADIOL [Concomitant]
     Active Substance: ESTRADIOL
     Indication: Vaginal infection
     Route: 065
     Dates: start: 20250617
  9. LEXAPRO [Concomitant]
     Active Substance: ESCITALOPRAM OXALATE
     Indication: Depression
     Route: 065
     Dates: start: 20250617
  10. LEXAPRO [Concomitant]
     Active Substance: ESCITALOPRAM OXALATE
     Indication: Anxiety
  11. MIRALAX [Concomitant]
     Active Substance: POLYETHYLENE GLYCOL 3350
     Indication: Product used for unknown indication
     Route: 065
     Dates: start: 20231025

REACTIONS (1)
  - Cerebellar stroke [Recovering/Resolving]

NARRATIVE: CASE EVENT DATE: 20250816
